FAERS Safety Report 16180922 (Version 1)
Quarter: 2019Q2

REPORT INFORMATION
  Report Type: Spontaneous
  Country: PT (occurrence: PT)
  Receive Date: 20190410
  Receipt Date: 20190410
  Transmission Date: 20190711
  Serious: Yes (Life-Threatening, Hospitalization, Other)
  Sender: FDA-Public Use
  Company Number: PT-PFIZER INC-2019148654

PATIENT
  Age: 38 Year
  Sex: Female

DRUGS (10)
  1. QUETIAPINE. [Suspect]
     Active Substance: QUETIAPINE
     Dosage: 9 G, SINGLE
     Route: 065
  2. ALPRAZOLAM. [Suspect]
     Active Substance: ALPRAZOLAM
     Dosage: 20 MG, DAILY
  3. VENLAFAXINE HCL [Suspect]
     Active Substance: VENLAFAXINE HYDROCHLORIDE
     Dosage: 3 G, SINGLE
     Route: 065
  4. QUETIAPINE. [Suspect]
     Active Substance: QUETIAPINE
     Dosage: 800 MG, DAILY
     Route: 065
  5. ACETAMINOPHEN. [Suspect]
     Active Substance: ACETAMINOPHEN
     Dosage: 15 G, SINGLE
     Route: 065
  6. CODEINE [Suspect]
     Active Substance: CODEINE
     Dosage: 900 MG, SINGLE
     Route: 065
  7. ACETAMINOPHEN. [Suspect]
     Active Substance: ACETAMINOPHEN
     Dosage: 5 G, DAILY
  8. CODEINE [Suspect]
     Active Substance: CODEINE
     Dosage: 300 MG, DAILY
  9. ALPRAZOLAM. [Suspect]
     Active Substance: ALPRAZOLAM
     Dosage: 40 MG, SINGLE
  10. ALPRAZOLAM. [Suspect]
     Active Substance: ALPRAZOLAM
     Dosage: 16 MG, DAILY
     Route: 065

REACTIONS (12)
  - Hepatic function abnormal [Recovered/Resolved]
  - Intentional overdose [Recovered/Resolved]
  - Distributive shock [Recovered/Resolved]
  - Liver injury [Recovering/Resolving]
  - Cardiovascular disorder [Recovered/Resolved]
  - Renal papillary necrosis [Recovering/Resolving]
  - Anuria [Recovering/Resolving]
  - Drug abuse [Unknown]
  - Coma [Recovered/Resolved]
  - Respiratory disorder [Recovered/Resolved]
  - Multiple organ dysfunction syndrome [Recovered/Resolved]
  - Nervous system disorder [Recovered/Resolved]
